FAERS Safety Report 18256391 (Version 2)
Quarter: 2020Q3

REPORT INFORMATION
  Report Type: Report from Study
  Country: PT (occurrence: PT)
  Receive Date: 20200911
  Receipt Date: 20200924
  Transmission Date: 20201103
  Serious: Yes (Hospitalization)
  Sender: FDA-Public Use
  Company Number: PT-EMD SERONO-9184269

PATIENT
  Age: 30 Year
  Sex: Female
  Weight: 96 kg

DRUGS (6)
  1. MINIGEST                           /00082602/ [Concomitant]
     Indication: PRODUCT USED FOR UNKNOWN INDICATION
     Route: 048
  2. OMEPRAZOLE. [Concomitant]
     Active Substance: OMEPRAZOLE
     Indication: PROPHYLAXIS
     Route: 048
     Dates: start: 2015
  3. TOPIRAMATE. [Concomitant]
     Active Substance: TOPIRAMATE
     Indication: MIGRAINE
  4. TOPIRAMATE. [Concomitant]
     Active Substance: TOPIRAMATE
     Indication: MULTIPLE SCLEROSIS
     Route: 048
     Dates: start: 201912
  5. SERTRALINE [Concomitant]
     Active Substance: SERTRALINE HYDROCHLORIDE
     Indication: DEPRESSION
     Dosage: 50 (UNSPECIFIED UNIT)
     Route: 048
     Dates: start: 2018
  6. MAVENCLAD [Suspect]
     Active Substance: CLADRIBINE
     Indication: RELAPSING-REMITTING MULTIPLE SCLEROSIS
     Dosage: YEAR ONE WEEK ONE: TWO TABLETS ON DAYS 1 TO 4 AND ONE TABLET ON DAY 5
     Route: 048
     Dates: start: 20200824, end: 20200828

REACTIONS (1)
  - Hepatitis acute [Recovered/Resolved]

NARRATIVE: CASE EVENT DATE: 20200829
